FAERS Safety Report 13632942 (Version 1)
Quarter: 2017Q2

REPORT INFORMATION
  Report Type: Spontaneous
  Country: US (occurrence: US)
  Receive Date: 20170531
  Receipt Date: 20170531
  Transmission Date: 20170830
  Serious: No
  Sender: FDA-Public Use
  Company Number: US-ASTELLAS-1491007

PATIENT
  Sex: Female

DRUGS (1)
  1. TARCEVA [Suspect]
     Active Substance: ERLOTINIB HYDROCHLORIDE
     Indication: LUNG NEOPLASM
     Dosage: TAKE ONE A DAY.
     Route: 048
     Dates: start: 20140929, end: 20141014

REACTIONS (5)
  - Swollen tongue [Recovering/Resolving]
  - Acne [Recovered/Resolved]
  - Stomatitis [Recovered/Resolved]
  - Hypergeusia [Recovering/Resolving]
  - Dysgeusia [Not Recovered/Not Resolved]
